FAERS Safety Report 25013408 (Version 5)
Quarter: 2025Q4

REPORT INFORMATION
  Report Type: Spontaneous
  Country: US (occurrence: US)
  Receive Date: 20250226
  Receipt Date: 20251116
  Transmission Date: 20260118
  Serious: No
  Sender: BRISTOL-MYERS SQUIBB COMPANY
  Company Number: US-BRISTOL-MYERS SQUIBB COMPANY-2025-029069

PATIENT
  Age: 55 Year
  Sex: Male
  Weight: 124.74 kg

DRUGS (3)
  1. ORENCIA [Suspect]
     Active Substance: ABATACEPT
     Indication: Rheumatoid arthritis
     Route: 058
     Dates: start: 202207
  2. ORENCIA [Suspect]
     Active Substance: ABATACEPT
     Route: 058
     Dates: start: 202207
  3. ORENCIA [Suspect]
     Active Substance: ABATACEPT
     Route: 058
     Dates: start: 202207

REACTIONS (7)
  - Pain [Unknown]
  - Swelling [Unknown]
  - Joint stiffness [Unknown]
  - Joint swelling [Unknown]
  - Device failure [Unknown]
  - Accidental exposure to product [Unknown]
  - Arthralgia [Unknown]

NARRATIVE: CASE EVENT DATE: 20250901
